FAERS Safety Report 24108606 (Version 1)
Quarter: 2024Q3

REPORT INFORMATION
  Report Type: Report from Study
  Country: US (occurrence: None)
  Receive Date: 20240718
  Receipt Date: 20240718
  Transmission Date: 20241016
  Serious: Yes (Other)
  Sender: ASTRAZENECA
  Company Number: 2020SE59780

PATIENT
  Sex: Male
  Weight: 89.8 kg

DRUGS (1)
  1. BYDUREON [Suspect]
     Active Substance: EXENATIDE
     Indication: Type 2 diabetes mellitus
     Route: 058
     Dates: start: 201910

REACTIONS (9)
  - Anaemia [Unknown]
  - Blood viscosity decreased [Unknown]
  - Platelet count decreased [Unknown]
  - Heart rate irregular [Unknown]
  - Injection site mass [Unknown]
  - Injection site pain [Unknown]
  - Injection site haemorrhage [Unknown]
  - Needle issue [Unknown]
  - Intentional device misuse [Unknown]
